FAERS Safety Report 8251558-6 (Version None)
Quarter: 2012Q1

REPORT INFORMATION
  Report Type: 
  Country: None (occurrence: None)
  Receive Date: 20120328
  Receipt Date: 20120313
  Transmission Date: 20120608
  Serious: Yes (Other)
  Sender: FDA-Public Use
  Company Number: DEP_00594_2012

PATIENT
  Sex: Female

DRUGS (1)
  1. GRALISE [Suspect]
     Indication: PRODUCT USED FOR UNKNOWN INDICATION
     Dosage: (DF)

REACTIONS (2)
  - SUICIDE ATTEMPT [None]
  - PSYCHOTIC DISORDER [None]
